FAERS Safety Report 9961594 (Version 2)
Quarter: 2014Q1

REPORT INFORMATION
  Report Type: Report from Study
  Country: US (occurrence: US)
  Receive Date: 20140305
  Receipt Date: 20140305
  Transmission Date: 20141002
  Serious: Yes (Other)
  Sender: FDA-Public Use
  Company Number: US-ABBVIE-13P-163-1106719-00

PATIENT
  Age: 40 Year
  Sex: Female

DRUGS (12)
  1. HUMIRA [Suspect]
     Indication: CROHN^S DISEASE
     Dates: start: 201302
  2. SYNTHROID [Concomitant]
     Indication: HYPOTHYROIDISM
     Route: 048
  3. SYNTHROID [Concomitant]
     Indication: GOITRE
  4. HYOSCYAMINE [Concomitant]
     Indication: ABDOMINAL PAIN
  5. HYOSCYAMINE [Concomitant]
     Indication: CROHN^S DISEASE
  6. XANAX [Concomitant]
     Indication: ANXIETY
     Route: 048
  7. LOMOTIL [Concomitant]
     Indication: DIARRHOEA
     Dosage: 1-3 EVERY 8 HOURS
  8. MACROBID [Concomitant]
     Indication: PROPHYLAXIS
     Dosage: 100MG PO AFTER INTERCOURSE
     Route: 048
  9. MACROBID [Concomitant]
     Indication: URINARY TRACT INFECTION
  10. PROBIOTICS [Concomitant]
     Indication: PRODUCT USED FOR UNKNOWN INDICATION
     Route: 048
  11. MULTIVITAMIN [Concomitant]
     Indication: PRODUCT USED FOR UNKNOWN INDICATION
     Route: 048
  12. FISH OIL [Concomitant]
     Indication: PRODUCT USED FOR UNKNOWN INDICATION
     Route: 048

REACTIONS (10)
  - Anal abscess [Recovering/Resolving]
  - Decreased appetite [Not Recovered/Not Resolved]
  - Abdominal distension [Not Recovered/Not Resolved]
  - Flatulence [Not Recovered/Not Resolved]
  - Nausea [Recovering/Resolving]
  - Crohn^s disease [Not Recovered/Not Resolved]
  - Abdominal pain [Not Recovered/Not Resolved]
  - Diarrhoea [Not Recovered/Not Resolved]
  - Gastroenteritis viral [Not Recovered/Not Resolved]
  - Pain [Not Recovered/Not Resolved]
